FAERS Safety Report 14916354 (Version 3)
Quarter: 2018Q4

REPORT INFORMATION
  Report Type: Report from Study
  Country: US (occurrence: US)
  Receive Date: 20180519
  Receipt Date: 20181230
  Transmission Date: 20190204
  Serious: No
  Sender: FDA-Public Use
  Company Number: PHEH2018US017402

PATIENT
  Age: 14 Year
  Sex: Male

DRUGS (2)
  1. OMNITROPE [Suspect]
     Active Substance: SOMATROPIN
     Indication: HYPOPITUITARISM
     Dosage: 2.4 MG, QD
     Route: 058
     Dates: start: 20180414, end: 20180418
  2. OMNITROPE [Suspect]
     Active Substance: SOMATROPIN
     Dosage: UNK
     Route: 058

REACTIONS (3)
  - Incorrect dose administered [Unknown]
  - Incorrect dose administered [Recovered/Resolved]
  - Device breakage [Unknown]

NARRATIVE: CASE EVENT DATE: 20180414
